FAERS Safety Report 7564403-9 (Version None)
Quarter: 2011Q2

REPORT INFORMATION
  Report Type: 
  Country: None (occurrence: None)
  Receive Date: 20110622
  Receipt Date: 20110610
  Transmission Date: 20111010
  Serious: Yes (Death)
  Sender: FDA-Public Use
  Company Number: PHEH2009US12750

PATIENT
  Sex: Male

DRUGS (1)
  1. EXJADE [Suspect]
     Indication: SICKLE CELL ANAEMIA
     Dosage: 2000 MG DAILY
     Route: 048

REACTIONS (2)
  - ACUTE RESPIRATORY DISTRESS SYNDROME [None]
  - MALAISE [None]
